FAERS Safety Report 16386914 (Version 1)
Quarter: 2019Q2

REPORT INFORMATION
  Report Type: Spontaneous
  Country: US (occurrence: US)
  Receive Date: 20190604
  Receipt Date: 20190604
  Transmission Date: 20190711
  Serious: Yes (Other)
  Sender: FDA-Public Use
  Company Number: US-CELLTRION INC.-2019US021505

PATIENT

DRUGS (2)
  1. INFLECTRA [Suspect]
     Active Substance: INFLIXIMAB-DYYB
     Indication: GASTROINTESTINAL INFLAMMATION
  2. INFLECTRA [Suspect]
     Active Substance: INFLIXIMAB-DYYB
     Indication: CROHN^S DISEASE
     Dosage: EVERY 7 WEEKS

REACTIONS (7)
  - Diarrhoea [Unknown]
  - Crohn^s disease [Unknown]
  - Discomfort [Recovered/Resolved]
  - Abdominal pain [Unknown]
  - Product dose omission [Not Recovered/Not Resolved]
  - Intestinal polyp [Recovered/Resolved]
  - Off label use [Unknown]

NARRATIVE: CASE EVENT DATE: 20190306
